FAERS Safety Report 5817632-6 (Version None)
Quarter: 2008Q3

REPORT INFORMATION
  Report Type: 
  Country: None (occurrence: None)
  Receive Date: 20080722
  Receipt Date: 20080710
  Transmission Date: 20090109
  Serious: Yes (Hospitalization)
  Sender: FDA-Public Use
  Company Number: AT-ROCHE-575156

PATIENT
  Age: 37 Year
  Sex: Female
  Weight: 65 kg

DRUGS (4)
  1. PEG-INTERFERON A-2A (RO 25-8310) [Suspect]
     Indication: HEPATITIS C
     Route: 065
     Dates: start: 20050729, end: 20060706
  2. RIBAVIRIN [Suspect]
     Indication: HEPATITIS C
     Route: 065
     Dates: start: 20050729, end: 20051021
  3. RIBAVIRIN [Suspect]
     Route: 065
     Dates: start: 20051021, end: 20060706
  4. VENLAFAXINE HCL [Concomitant]

REACTIONS (1)
  - POST-TRAUMATIC STRESS DISORDER [None]
